FAERS Safety Report 11465554 (Version 1)
Quarter: 2015Q3

REPORT INFORMATION
  Report Type: Spontaneous
  Country: BR (occurrence: BR)
  Receive Date: 20150907
  Receipt Date: 20150907
  Transmission Date: 20151125
  Serious: Yes (Hospitalization)
  Sender: FDA-Public Use
  Company Number: BR-ASTRAZENECA-2015SE84853

PATIENT
  Age: 830 Month
  Sex: Female
  Weight: 61 kg

DRUGS (8)
  1. SELOZOK [Suspect]
     Active Substance: METOPROLOL SUCCINATE
     Indication: HEART RATE INCREASED
     Route: 048
  2. SELOZOK [Suspect]
     Active Substance: METOPROLOL SUCCINATE
     Indication: HEART RATE INCREASED
     Route: 048
     Dates: start: 201504
  3. TREZOR [Suspect]
     Active Substance: ROSUVASTATIN CALCIUM
     Indication: BLOOD CHOLESTEROL ABNORMAL
     Route: 048
     Dates: start: 201502, end: 201508
  4. TREZOR [Suspect]
     Active Substance: ROSUVASTATIN CALCIUM
     Indication: BLOOD CHOLESTEROL ABNORMAL
     Route: 048
     Dates: start: 201508
  5. ATENOLOL. [Suspect]
     Active Substance: ATENOLOL
     Indication: HEART RATE INCREASED
     Dosage: 25 MG, TWO TIMES A DAY (MEDLEY MANUFACTURER)
     Route: 048
     Dates: start: 201504, end: 201504
  6. OMEGA 3 [Concomitant]
     Active Substance: OMEGA-3 FATTY ACIDS
     Indication: VITAMIN SUPPLEMENTATION
     Route: 048
  7. XARELTO [Concomitant]
     Active Substance: RIVAROXABAN
     Indication: ATRIAL FIBRILLATION
     Dosage: EVERY DAY
     Route: 048
     Dates: start: 201504
  8. ATENOLOL. [Suspect]
     Active Substance: ATENOLOL
     Indication: HEART RATE INCREASED
     Dosage: 25 MG, TWO TIMES A DAY (TEUTO MANUFACTURER)
     Route: 048
     Dates: end: 201504

REACTIONS (3)
  - Atrial fibrillation [Recovered/Resolved]
  - Blood cholesterol increased [Recovered/Resolved]
  - Off label use [Not Recovered/Not Resolved]

NARRATIVE: CASE EVENT DATE: 201502
